FAERS Safety Report 8492095-3 (Version None)
Quarter: 2012Q3

REPORT INFORMATION
  Report Type: 
  Country: None (occurrence: None)
  Receive Date: 20120706
  Receipt Date: 20120628
  Transmission Date: 20120928
  Serious: Yes (Death)
  Sender: FDA-Public Use
  Company Number: MX-UCBSA-060772

PATIENT
  Age: 85 Year
  Sex: Female
  Weight: 45 kg

DRUGS (4)
  1. NUBRENZA [Suspect]
     Indication: PARKINSON'S DISEASE
     Route: 062
     Dates: start: 20111126, end: 20111202
  2. NUBRENZA [Suspect]
     Route: 062
     Dates: start: 20111112, end: 20111118
  3. AZILECT [Concomitant]
     Indication: PARKINSON'S DISEASE
     Route: 048
     Dates: start: 20111112, end: 20111206
  4. NUBRENZA [Suspect]
     Route: 062
     Dates: start: 20111119, end: 20111125

REACTIONS (4)
  - ANXIETY [None]
  - CARDIO-RESPIRATORY ARREST [None]
  - ACUTE MYOCARDIAL INFARCTION [None]
  - AGGRESSION [None]
